FAERS Safety Report 9205003 (Version 3)
Quarter: 2013Q4

REPORT INFORMATION
  Report Type: Spontaneous
  Country: JP (occurrence: JP)
  Receive Date: 20130402
  Receipt Date: 20131218
  Transmission Date: 20140711
  Serious: Yes (Death, Hospitalization)
  Sender: FDA-Public Use
  Company Number: JP-ROCHE-1207553

PATIENT
  Age: 79 Year
  Sex: Male

DRUGS (14)
  1. RITUXIMAB [Suspect]
     Indication: EXTRANODAL MARGINAL ZONE B-CELL LYMPHOMA (MALT TYPE)
     Route: 042
     Dates: start: 20110711
  2. RITUXIMAB [Suspect]
     Indication: AUTOIMMUNE THYROIDITIS
  3. CYCLOPHOSPHAMIDE [Suspect]
     Indication: EXTRANODAL MARGINAL ZONE B-CELL LYMPHOMA (MALT TYPE)
     Route: 065
     Dates: start: 201107, end: 201110
  4. CYCLOPHOSPHAMIDE [Suspect]
     Indication: AUTOIMMUNE THYROIDITIS
  5. PIRARUBICIN HYDROCHLORIDE [Suspect]
     Indication: EXTRANODAL MARGINAL ZONE B-CELL LYMPHOMA (MALT TYPE)
     Route: 065
     Dates: start: 201107, end: 201110
  6. PIRARUBICIN HYDROCHLORIDE [Suspect]
     Indication: AUTOIMMUNE THYROIDITIS
  7. VINCRISTINE SULFATE [Suspect]
     Indication: EXTRANODAL MARGINAL ZONE B-CELL LYMPHOMA (MALT TYPE)
     Route: 065
     Dates: start: 201107, end: 201110
  8. VINCRISTINE SULFATE [Suspect]
     Indication: AUTOIMMUNE THYROIDITIS
  9. PREDNISOLONE [Suspect]
     Indication: EXTRANODAL MARGINAL ZONE B-CELL LYMPHOMA (MALT TYPE)
     Route: 065
     Dates: start: 201107, end: 201110
  10. PREDNISOLONE [Suspect]
     Indication: AUTOIMMUNE THYROIDITIS
  11. THYRADIN-S [Concomitant]
     Indication: AUTOIMMUNE THYROIDITIS
     Route: 048
  12. HARNAL D [Concomitant]
     Indication: PROSTATOMEGALY
     Route: 048
  13. MUCOSOLVAN [Concomitant]
     Route: 048
  14. ITRIZOLE [Concomitant]
     Route: 048
     Dates: start: 20110719, end: 20111027

REACTIONS (1)
  - Progressive multifocal leukoencephalopathy [Fatal]
